FAERS Safety Report 22949943 (Version 3)
Quarter: 2023Q4

REPORT INFORMATION
  Report Type: Spontaneous
  Country: US (occurrence: US)
  Receive Date: 20230915
  Receipt Date: 20231023
  Transmission Date: 20240110
  Serious: Yes (Other)
  Sender: FDA-Public Use
  Company Number: US-BAUSCH-BL-2023-013678

PATIENT
  Age: 13 Year
  Sex: Male

DRUGS (2)
  1. RIBAVIRIN [Suspect]
     Active Substance: RIBAVIRIN
     Indication: Pneumonia respiratory syncytial viral
     Dosage: FIRST DOSE (LOADING DOSE, TOTAL)
     Route: 042
     Dates: start: 20230831, end: 20230831
  2. RIBAVIRIN [Suspect]
     Active Substance: RIBAVIRIN
     Dosage: QID HOUR REGIMEN (1G EVERY 6 HOURS), WITH A TOTAL OF 6 DOSES ADMINISTERED
     Route: 042
     Dates: start: 20230831, end: 20230902

REACTIONS (2)
  - Intensive care unit delirium [Recovered/Resolved]
  - Mental status changes [Recovered/Resolved]

NARRATIVE: CASE EVENT DATE: 20230901
